FAERS Safety Report 5776714-8 (Version None)
Quarter: 2008Q2

REPORT INFORMATION
  Report Type: 
  Country: None (occurrence: None)
  Receive Date: 20080618
  Receipt Date: 20080306
  Transmission Date: 20081010
  Serious: No
  Sender: FDA-Public Use
  Company Number: US-ASTRAZENECA-2008UW04540

PATIENT
  Age: 37 Year
  Sex: Female

DRUGS (1)
  1. SYMBICORT [Suspect]
     Indication: CHEST PAIN
     Dosage: 160/4.5 MG
     Route: 055
     Dates: start: 20080301

REACTIONS (3)
  - LIP SWELLING [None]
  - ORAL PRURITUS [None]
  - THROAT IRRITATION [None]
